FAERS Safety Report 7745901-1 (Version None)
Quarter: 2011Q3

REPORT INFORMATION
  Report Type: 
  Country: None (occurrence: None)
  Receive Date: 20110913
  Receipt Date: 20110908
  Transmission Date: 20111222
  Serious: No
  Sender: FDA-Public Use
  Company Number: US-PFIZER INC-2011211887

PATIENT
  Sex: Female
  Weight: 63.492 kg

DRUGS (4)
  1. LEVOXYL [Concomitant]
     Indication: HYPOTHYROIDISM
     Dosage: 88 MCG. DAILY AT NIGHT TIME
     Dates: start: 20050101, end: 20050101
  2. LIPITOR [Suspect]
     Indication: BLOOD CHOLESTEROL INCREASED
     Dosage: 10 MG, DAILY AT NIGHT TIME
     Dates: start: 20090101, end: 20110401
  3. OMEPRAZOLE [Concomitant]
     Indication: GASTROOESOPHAGEAL REFLUX DISEASE
     Dosage: 20 MG, DAILY AT NIGHT TIME
     Dates: start: 20060101, end: 20060101
  4. LIPITOR [Suspect]
     Indication: LOW DENSITY LIPOPROTEIN DECREASED
     Dosage: 20MG, DAILY
     Dates: start: 20110401

REACTIONS (1)
  - DIZZINESS [None]
